FAERS Safety Report 9816374 (Version 1)
Quarter: 2014Q1

REPORT INFORMATION
  Report Type: Spontaneous
  Country: US (occurrence: US)
  Receive Date: 20140114
  Receipt Date: 20140114
  Transmission Date: 20141002
  Serious: Yes (Death, Hospitalization)
  Sender: FDA-Public Use
  Company Number: US-PFIZER INC-2014006731

PATIENT
  Age: 32 Year
  Sex: Male

DRUGS (3)
  1. DOXYCYCLINE CALCIUM [Suspect]
  2. COCAINE [Suspect]
  3. LABETALOL [Suspect]

REACTIONS (3)
  - Drug abuse [Fatal]
  - Cardiac arrest [Fatal]
  - Respiratory arrest [Fatal]
